FAERS Safety Report 12238780 (Version 1)
Quarter: 2016Q2

REPORT INFORMATION
  Report Type: Spontaneous
  Country: US (occurrence: US)
  Receive Date: 20160405
  Receipt Date: 20160405
  Transmission Date: 20160815
  Serious: No
  Sender: FDA-Public Use
  Company Number: US-TEVA-628066USA

PATIENT
  Age: 76 Year
  Sex: Female
  Weight: 81.72 kg

DRUGS (3)
  1. IBRANCE [Suspect]
     Active Substance: PALBOCICLIB
     Indication: NON-HODGKIN^S LYMPHOMA
     Dosage: 100 MILLIGRAM DAILY;
     Route: 048
     Dates: start: 20151223
  2. IBRANCE [Suspect]
     Active Substance: PALBOCICLIB
     Indication: BREAST CANCER FEMALE
  3. WARFARIN [Suspect]
     Active Substance: WARFARIN
     Route: 065

REACTIONS (1)
  - International normalised ratio increased [Recovering/Resolving]
